FAERS Safety Report 5074656-7 (Version None)
Quarter: 2006Q3

REPORT INFORMATION
  Report Type: 
  Country: None (occurrence: None)
  Receive Date: 20060803
  Receipt Date: 20060725
  Transmission Date: 20061208
  Serious: Yes (Congenital Anomaly)
  Sender: FDA-Public Use
  Company Number: 2006016051

PATIENT
  Sex: Female
  Weight: 3.2 kg

DRUGS (2)
  1. VIRACEPT [Suspect]
     Indication: HIV TEST POSITIVE
     Dosage: 2500 MG ORAL
     Route: 048
     Dates: start: 20050330
  2. COMBIVIR [Suspect]
     Indication: HIV TEST POSITIVE
     Dosage: 2 TABLETS ORAL
     Route: 048
     Dates: start: 20050330

REACTIONS (3)
  - DRUG EXPOSURE DURING PREGNANCY [None]
  - FALSE POSITIVE LABORATORY RESULT [None]
  - PREMATURE BABY [None]
